FAERS Safety Report 4832019-0 (Version None)
Quarter: 2005Q4

REPORT INFORMATION
  Report Type: 
  Country: None (occurrence: None)
  Receive Date: 20051116
  Receipt Date: 20051101
  Transmission Date: 20060501
  Serious: Yes (Hospitalization)
  Sender: FDA-Public Use
  Company Number: 8013094

PATIENT
  Age: 5 Month
  Sex: Male
  Weight: 16 kg

DRUGS (4)
  1. KEPPRA [Suspect]
     Indication: EPILEPSY
     Dosage: 375 MG 2/D PO
     Route: 048
  2. VALPROATE SODIUM [Concomitant]
  3. LAMOTRIGINE [Concomitant]
  4. PHENYTOIN [Concomitant]

REACTIONS (3)
  - GASTROSTOMY TUBE INSERTION [None]
  - NEONATAL DISORDER [None]
  - STATUS EPILEPTICUS [None]
